FAERS Safety Report 4376665-X (Version None)
Quarter: 2004Q2

REPORT INFORMATION
  Report Type: 
  Country: None (occurrence: None)
  Receive Date: 20040601
  Receipt Date: 20040226
  Transmission Date: 20050107
  Serious: No
  Sender: FDA-Public Use
  Company Number: 701702

PATIENT
  Age: 62 Year
  Sex: Female

DRUGS (2)
  1. AMEVIVE [Suspect]
     Indication: PSORIASIS
     Dosage: 15 MG QW IM
     Route: 030
     Dates: end: 20040213
  2. PREDNISONE [Concomitant]

REACTIONS (2)
  - CELLULITIS [None]
  - LYMPHOPENIA [None]
